FAERS Safety Report 16361231 (Version 1)
Quarter: 2019Q2

REPORT INFORMATION
  Report Type: Spontaneous
  Country: US (occurrence: US)
  Receive Date: 20190419
  Receipt Date: 20190419
  Transmission Date: 20190711
  Serious: No
  Sender: FDA-Public Use
  Company Number: None

PATIENT
  Age: 48 Year
  Sex: Female
  Weight: 56.52 kg

DRUGS (1)
  1. INTRON A [Suspect]
     Active Substance: INTERFERON ALFA-2B
     Dosage: ?          OTHER DOSE:208MU;?
     Dates: end: 20120404

REACTIONS (2)
  - Hypothyroidism [None]
  - Immune system disorder [None]

NARRATIVE: CASE EVENT DATE: 20120409
